FAERS Safety Report 5151646-7 (Version None)
Quarter: 2006Q4

REPORT INFORMATION
  Report Type: 
  Country: None (occurrence: None)
  Receive Date: 20061115
  Receipt Date: 20061006
  Transmission Date: 20070319
  Serious: Yes (Other)
  Sender: FDA-Public Use
  Company Number: JP-ROCHE-466921

PATIENT
  Age: 4 Year
  Sex: Male

DRUGS (10)
  1. TAMIFLU [Suspect]
     Dosage: DRUG REPORTED AS TAMIFLU DRY SYRUP.
     Route: 048
     Dates: start: 20060112, end: 20060112
  2. TAMIFLU [Suspect]
     Dosage: DRUG REPORTED AS TAMIFLU DRY SYRUP.
     Route: 048
     Dates: start: 20060113, end: 20060116
  3. TAMIFLU [Suspect]
     Dosage: DRUG REPORTED AS TAMIFLU DRY SYRUP.
     Route: 048
     Dates: start: 20060117
  4. ASVERIN [Concomitant]
     Route: 048
     Dates: start: 20060114, end: 20060116
  5. ALAGYL [Concomitant]
     Route: 048
     Dates: start: 20060114, end: 20060116
  6. SOLDEM [Concomitant]
     Dosage: DRUG NAME: SOLDEM 3A
     Route: 041
     Dates: start: 20060114, end: 20060116
  7. METHYLPREDNISOLONE SODIUM SUCCINATE [Concomitant]
     Dosage: ROUTE: INTRAVENOUS (NOT OTHERWISE SPECIFIED)
     Route: 050
     Dates: start: 20060114, end: 20060114
  8. TRICLORYL [Concomitant]
     Route: 048
     Dates: start: 20060114, end: 20060114
  9. CHLORAL HYDRATE [Concomitant]
     Dosage: DOSE FORM: RECTAL SUPPOSITORY
     Route: 054
     Dates: start: 20060114, end: 20060114
  10. MUCODYNE [Concomitant]
     Route: 048
     Dates: start: 20060114, end: 20060116

REACTIONS (11)
  - ABDOMINAL PAIN [None]
  - ABNORMAL BEHAVIOUR [None]
  - CONVULSION [None]
  - CRYING [None]
  - DEPRESSED LEVEL OF CONSCIOUSNESS [None]
  - DIARRHOEA [None]
  - EYE DISORDER [None]
  - FAECES HARD [None]
  - HEART RATE INCREASED [None]
  - PAIN [None]
  - SPEECH DISORDER [None]
